FAERS Safety Report 16735471 (Version 2)
Quarter: 2019Q4

REPORT INFORMATION
  Report Type: Spontaneous
  Country: AR (occurrence: AR)
  Receive Date: 20190823
  Receipt Date: 20191216
  Transmission Date: 20200122
  Serious: Yes (Other)
  Sender: FDA-Public Use
  Company Number: AR-PFIZER INC-2019358935

PATIENT
  Age: 56 Year
  Sex: Female

DRUGS (2)
  1. IBRANCE [Suspect]
     Active Substance: PALBOCICLIB
     Indication: BREAST CANCER METASTATIC
     Dosage: 125 MG, CYCLIC (DAILY, 3X1 SCHEME)
     Dates: start: 20181225
  2. LETROZOL [Suspect]
     Active Substance: LETROZOLE
     Dosage: UNK

REACTIONS (8)
  - Conjunctivitis [Unknown]
  - Lacrimation increased [Unknown]
  - Neoplasm progression [Unknown]
  - Peripheral ischaemia [Unknown]
  - Fatigue [Unknown]
  - Thyroid disorder [Unknown]
  - Depression [Unknown]
  - Blindness [Unknown]

NARRATIVE: CASE EVENT DATE: 2019
